FAERS Safety Report 7412153-1 (Version None)
Quarter: 2011Q2

REPORT INFORMATION
  Report Type: 
  Country: None (occurrence: None)
  Receive Date: 20110413
  Receipt Date: 20110401
  Transmission Date: 20111010
  Serious: Yes (Life-Threatening, Other)
  Sender: FDA-Public Use
  Company Number: FR-PFIZER INC-2011072623

PATIENT
  Age: 47 Year
  Sex: Male
  Weight: 48 kg

DRUGS (3)
  1. KEPPRA [Concomitant]
     Indication: GLIOBLASTOMA MULTIFORME
     Dosage: 1000 UNK PER 24H
     Route: 048
     Dates: start: 20080601
  2. SUNITINIB MALATE [Suspect]
     Indication: GLIOBLASTOMA
     Dosage: 50 MG/M2, UNK
     Route: 048
     Dates: start: 20110308, end: 20110323
  3. NEXIUM [Concomitant]
     Indication: ABDOMINAL PAIN UPPER
     Dosage: 40 UNK PER 24H
     Route: 048
     Dates: start: 20110328

REACTIONS (3)
  - PANCREATITIS [None]
  - CYTOLYTIC HEPATITIS [None]
  - LIPASE INCREASED [None]
